FAERS Safety Report 11353811 (Version 1)
Quarter: 2015Q3

REPORT INFORMATION
  Report Type: Spontaneous
  Country: US (occurrence: US)
  Receive Date: 20150807
  Receipt Date: 20150807
  Transmission Date: 20151125
  Serious: No
  Sender: FDA-Public Use
  Company Number: US-JNJFOC-20150310494

PATIENT
  Age: 33 Year
  Sex: Female
  Weight: 71.67 kg

DRUGS (3)
  1. WOMENS ROGAINE UNSCENTED [Suspect]
     Active Substance: MINOXIDIL
     Route: 061
  2. WOMENS ROGAINE UNSCENTED [Suspect]
     Active Substance: MINOXIDIL
     Indication: ALOPECIA
     Dosage: A LITTLE MORE THAN HALF A CAPFUL ONCE A DAY.
     Route: 061
     Dates: end: 20150307
  3. MULTIVITAMINS [Concomitant]
     Active Substance: VITAMINS
     Indication: ROUTINE HEALTH MAINTENANCE
     Dosage: OVER 6 YEARS AGO
     Route: 065

REACTIONS (3)
  - Acne [Not Recovered/Not Resolved]
  - Product formulation issue [Unknown]
  - Drug ineffective [Unknown]
